FAERS Safety Report 22400409 (Version 1)
Quarter: 2023Q2

REPORT INFORMATION
  Report Type: Spontaneous
  Country: DE (occurrence: DE)
  Receive Date: 20230602
  Receipt Date: 20230602
  Transmission Date: 20230722
  Serious: Yes (Hospitalization, Disabling, Other)
  Sender: FDA-Public Use
  Company Number: DE-PANACEA-MWE-PAN-23_00045

PATIENT
  Age: 80 Year
  Sex: Female

DRUGS (3)
  1. MYCOPHENOLATE MOFETIL [Suspect]
     Active Substance: MYCOPHENOLATE MOFETIL
     Indication: Product used for unknown indication
     Dosage: 1500 MILLIGRAM, QD
     Route: 065
  2. PREDNISOLONE [Suspect]
     Active Substance: PREDNISOLONE
     Indication: Product used for unknown indication
     Dosage: 5 MILLIGRAM, QD
     Route: 065
  3. CYCLOSPORINE [Suspect]
     Active Substance: CYCLOSPORINE
     Indication: Product used for unknown indication
     Dosage: LOCAL THERAPY CICLOSPORIN 2%
     Route: 065

REACTIONS (5)
  - Pemphigoid [Unknown]
  - Limbal stem cell deficiency [Not Recovered/Not Resolved]
  - COVID-19 [Recovered/Resolved]
  - Ophthalmic herpes zoster [Recovered/Resolved with Sequelae]
  - Off label use [Unknown]
